FAERS Safety Report 8081907-3 (Version None)
Quarter: 2012Q1

REPORT INFORMATION
  Report Type: 
  Country: None (occurrence: None)
  Receive Date: 20120130
  Receipt Date: 20110330
  Transmission Date: 20120608
  Serious: No
  Sender: FDA-Public Use
  Company Number: US-ABBOTT-11P-163-0715239-00

PATIENT
  Sex: Male

DRUGS (3)
  1. LUPRON DEPOT [Suspect]
     Indication: PROSTATE CANCER
     Dates: start: 20110228, end: 20110228
  2. LOSARTAN POTASSIUM [Concomitant]
     Indication: HYPERTENSION
  3. LUPRON DEPOT [Suspect]
     Indication: PROSTATE CANCER
     Dates: start: 20110328, end: 20110328

REACTIONS (3)
  - INJECTION SITE ERYTHEMA [None]
  - CELLULITIS [None]
  - CHILLS [None]
